FAERS Safety Report 25172830 (Version 1)
Quarter: 2025Q2

REPORT INFORMATION
  Report Type: Spontaneous
  Country: FR (occurrence: FR)
  Receive Date: 20250408
  Receipt Date: 20250408
  Transmission Date: 20250717
  Serious: Yes (Hospitalization, Other)
  Sender: CHEPLAPHARM
  Company Number: None

PATIENT
  Age: 53 Year
  Sex: Male

DRUGS (24)
  1. VALGANCICLOVIR [Suspect]
     Active Substance: VALGANCICLOVIR
     Indication: Cytomegalovirus infection
     Dosage: 450 MG/DAY?DAILY DOSE: 450 MILLIGRAM
     Route: 042
     Dates: start: 20241121
  2. GANCICLOVIR [Suspect]
     Active Substance: GANCICLOVIR
  3. TACROLIMUS [Suspect]
     Active Substance: TACROLIMUS
     Indication: Renal transplant
     Route: 042
     Dates: start: 202406
  4. LETERMOVIR [Suspect]
     Active Substance: LETERMOVIR
     Indication: Cytomegalovirus infection
     Route: 048
     Dates: start: 202410
  5. EVEROLIMUS [Suspect]
     Active Substance: EVEROLIMUS
     Indication: Renal transplant
     Route: 048
     Dates: start: 202412
  6. HUMAN CYTOMEGALOVIRUS IMMUNE GLOBULIN [Concomitant]
     Active Substance: HUMAN CYTOMEGALOVIRUS IMMUNE GLOBULIN
     Route: 042
     Dates: start: 20241111
  7. CERTICAN [Concomitant]
     Active Substance: EVEROLIMUS
     Dosage: 0.5 MG IN THE MORNING AND 0.5 MG IN THE EVENING?DAILY DOSE: 1 MILLIGRAM
  8. TACROLIMUS [Concomitant]
     Active Substance: TACROLIMUS
     Indication: Immunosuppression
     Dosage: 0.2 MG IN THE MORNING AND 0.2 MG IN THE EVENING?DAILY DOSE: 0.4 MILLIGRAM
  9. PREDNISONE [Concomitant]
     Active Substance: PREDNISONE
     Indication: Immunosuppression
  10. KARDEGIC [Concomitant]
     Active Substance: ASPIRIN DL-LYSINE
  11. URAPIDIL [Concomitant]
     Active Substance: URAPIDIL
     Dosage: 90 MG MORNING, NOON AND EVENING?DAILY DOSE: 270 MILLIGRAM
  12. LASIX [Concomitant]
     Active Substance: FUROSEMIDE
  13. POTASSIUM CHLORIDE [Concomitant]
     Active Substance: POTASSIUM CHLORIDE
     Dosage: 3 CAPSULES MORNING, NOON AND EVENING?DAILY DOSE: 3 DOSAGE FORM
  14. AMLODIPINE [Concomitant]
     Active Substance: AMLODIPINE BESYLATE
  15. ACETAMINOPHEN [Concomitant]
     Active Substance: ACETAMINOPHEN
  16. MELATONIN [Concomitant]
     Active Substance: MELATONIN
  17. LANSOPRAZOLE [Concomitant]
     Active Substance: LANSOPRAZOLE
  18. Mag 2 24H [Concomitant]
  19. LANTUS [Concomitant]
     Active Substance: INSULIN GLARGINE
     Indication: Diabetes mellitus
  20. ARANESP [Concomitant]
     Active Substance: DARBEPOETIN ALFA
  21. AMOXICILLIN [Concomitant]
     Active Substance: AMOXICILLIN
  22. MARIBAVIR [Concomitant]
     Active Substance: MARIBAVIR
     Dates: start: 202407, end: 202411
  23. FOSCARNET [Concomitant]
     Active Substance: FOSCARNET
     Dates: start: 202409, end: 202412
  24. CELLCEPT [Concomitant]
     Active Substance: MYCOPHENOLATE MOFETIL
     Dosage: 1000 MG MORNING AND 1000 MG EVENING ?DAILY DOSE: 2000 MILLIGRAM
     Dates: start: 202403, end: 202406

REACTIONS (9)
  - Guillain-Barre syndrome [Not Recovered/Not Resolved]
  - Hypokalaemia [Unknown]
  - Drug resistance [Unknown]
  - Anaemia [Unknown]
  - Hypercreatinaemia [Unknown]
  - Gait disturbance [Unknown]
  - Balance disorder [Unknown]
  - Fall [Unknown]
  - Off label use [Unknown]

NARRATIVE: CASE EVENT DATE: 20240101
